FAERS Safety Report 17918030 (Version 1)
Quarter: 2020Q2

REPORT INFORMATION
  Report Type: Spontaneous
  Country: US (occurrence: US)
  Receive Date: 20200619
  Receipt Date: 20200619
  Transmission Date: 20200714
  Serious: No
  Sender: FDA-Public Use
  Company Number: US-ASTRAZENECA-2020SE73001

PATIENT
  Age: 668 Month
  Sex: Female

DRUGS (6)
  1. ASTMANEX [Concomitant]
     Indication: HYPERSENSITIVITY
     Route: 055
  2. ALBUTEROL. [Concomitant]
     Active Substance: ALBUTEROL
     Indication: OBSTRUCTIVE AIRWAYS DISORDER
     Dosage: AS REQUIRED
     Route: 055
  3. ASTMANEX [Concomitant]
     Indication: ASTHMA
     Route: 055
  4. PULMICORT FLEXHALER [Suspect]
     Active Substance: BUDESONIDE
     Indication: ASTHMA
     Dosage: 180 MCG, 1 PUFF, TWO TIMES A DAY
     Route: 055
     Dates: start: 202005
  5. ASTMANEX [Concomitant]
     Indication: ECZEMA
     Route: 055
  6. EPIPEN [Concomitant]
     Active Substance: EPINEPHRINE
     Dosage: UNKNOWN
     Route: 065

REACTIONS (5)
  - Intentional device misuse [Unknown]
  - Drug ineffective [Recovered/Resolved]
  - Device issue [Unknown]
  - Drug dose omission by device [Recovered/Resolved]
  - Dry throat [Unknown]

NARRATIVE: CASE EVENT DATE: 202005
